FAERS Safety Report 13950103 (Version 3)
Quarter: 2017Q4

REPORT INFORMATION
  Report Type: Spontaneous
  Country: NL (occurrence: NL)
  Receive Date: 20170908
  Receipt Date: 20171006
  Transmission Date: 20180320
  Serious: Yes (Hospitalization, Other)
  Sender: FDA-Public Use
  Company Number: NL-BAYER-2017-167168

PATIENT
  Sex: Male
  Weight: 98 kg

DRUGS (3)
  1. XOFIGO [Suspect]
     Active Substance: RADIUM RA-223 DICHLORIDE
     Indication: PROSTATE CANCER STAGE IV
     Dosage: 5.3 MBQ
     Dates: start: 20170720
  2. XOFIGO [Suspect]
     Active Substance: RADIUM RA-223 DICHLORIDE
     Indication: METASTASES TO BONE
     Dosage: 5.22 MBQ, UNK
     Dates: start: 20170824
  3. TRIPTORELIN [Concomitant]
     Active Substance: TRIPTORELIN
     Dosage: 225 MG, UNK
     Route: 030

REACTIONS (3)
  - Fall [None]
  - Pathological fracture [None]
  - Metastases to bone [None]
